FAERS Safety Report 7049527-7 (Version None)
Quarter: 2010Q4

REPORT INFORMATION
  Report Type: 
  Country: None (occurrence: None)
  Receive Date: 20101013
  Receipt Date: 20100930
  Transmission Date: 20110411
  Serious: Yes (Death, Other)
  Sender: FDA-Public Use
  Company Number: MC201000252

PATIENT
  Age: 68 Year
  Sex: Male

DRUGS (4)
  1. ANGIOMAX [Suspect]
     Indication: STENT PLACEMENT
     Dosage: INTRAVENOUS ; INTRAVENOUS
     Route: 042
     Dates: start: 20100904, end: 20100904
  2. ANGIOMAX [Suspect]
     Indication: STENT PLACEMENT
     Dosage: INTRAVENOUS ; INTRAVENOUS
     Route: 042
     Dates: start: 20100904, end: 20100904
  3. HEPARIN [Concomitant]
  4. SOTALOL HYDROCHLORIDE [Concomitant]

REACTIONS (2)
  - CARDIOGENIC SHOCK [None]
  - INTERNATIONAL NORMALISED RATIO INCREASED [None]
